FAERS Safety Report 6894500-2 (Version None)
Quarter: 2010Q3

REPORT INFORMATION
  Report Type: 
  Country: None (occurrence: None)
  Receive Date: 20100728
  Receipt Date: 20100719
  Transmission Date: 20110219
  Serious: Yes (Other)
  Sender: FDA-Public Use
  Company Number: 2010SP039610

PATIENT
  Age: 70 Year
  Sex: Male
  Weight: 73 kg

DRUGS (6)
  1. MIRTAZAPINE [Suspect]
     Indication: ANXIETY
     Dosage: 15 MG;QPM;PO; 30 MG;QPM;PO 45 MG;QPM;PO
     Route: 048
     Dates: start: 20060101
  2. MIRTAZAPINE [Suspect]
     Indication: DEPRESSION
     Dosage: 15 MG;QPM;PO; 30 MG;QPM;PO 45 MG;QPM;PO
     Route: 048
     Dates: start: 20060101
  3. VENLAFAXINE HCL [Suspect]
     Indication: ANXIETY
     Dosage: 37.5 MG;QD
     Dates: start: 20060601
  4. VENLAFAXINE HCL [Suspect]
     Indication: DEPRESSION
     Dosage: 37.5 MG;QD
     Dates: start: 20060601
  5. CLONAZEPAM [Concomitant]
  6. CALCIUM CHANNEL BLOCKERS [Concomitant]

REACTIONS (3)
  - COGWHEEL RIGIDITY [None]
  - PARKINSON'S DISEASE [None]
  - PARKINSONIAN GAIT [None]
